FAERS Safety Report 12351421 (Version 1)
Quarter: 2016Q2

REPORT INFORMATION
  Report Type: Spontaneous
  Country: US (occurrence: None)
  Receive Date: 20160509
  Receipt Date: 20160509
  Transmission Date: 20160815
  Serious: Yes (Other)
  Sender: FDA-Public Use
  Company Number: None

PATIENT
  Age: 40 Year
  Sex: Female
  Weight: 54.43 kg

DRUGS (4)
  1. MULTI VITAMIN GUMMIES [Concomitant]
  2. TRI-LO-SPRINTEC [Suspect]
     Active Substance: ETHINYL ESTRADIOL\NORGESTIMATE
     Indication: CONTRACEPTION
     Route: 048
     Dates: start: 20160131, end: 20160228
  3. ORTHO TRI CYCLEN LO [Concomitant]
     Active Substance: ETHINYL ESTRADIOL\NORGESTIMATE
  4. HAIR SKIN AND NAILS VITAMIN [Concomitant]

REACTIONS (6)
  - Tremor [None]
  - Product substitution issue [None]
  - Heart rate increased [None]
  - Depression [None]
  - Mood swings [None]
  - Abdominal distension [None]

NARRATIVE: CASE EVENT DATE: 20160131
